FAERS Safety Report 13515045 (Version 1)
Quarter: 2017Q2

REPORT INFORMATION
  Report Type: Spontaneous
  Country: US (occurrence: US)
  Receive Date: 20170504
  Receipt Date: 20170504
  Transmission Date: 20170830
  Serious: No
  Sender: FDA-Public Use
  Company Number: US-TEVA-725964ACC

PATIENT
  Age: 92 Year
  Sex: Male

DRUGS (1)
  1. POTASSIUM CHLORIDE EXTENDED-RELEASE TABLETS, USP [Suspect]
     Active Substance: POTASSIUM CHLORIDE
     Dosage: EVERY OTHER DAY

REACTIONS (2)
  - Dysphagia [Unknown]
  - Expired product administered [Unknown]
